FAERS Safety Report 8388585-4 (Version None)
Quarter: 2012Q2

REPORT INFORMATION
  Report Type: 
  Country: None (occurrence: None)
  Receive Date: 20120525
  Receipt Date: 20110615
  Transmission Date: 20120825
  Serious: Yes (Other)
  Sender: FDA-Public Use
  Company Number: US-ROCHE-783787

PATIENT
  Sex: Female

DRUGS (17)
  1. COPEGUS [Suspect]
     Dosage: FREQUENCY:DIVIDED DOSES, 200 MG IN MORNING, 200 MG IN EVENING
     Route: 048
  2. NAPROSYN [Concomitant]
  3. SEROQUEL [Concomitant]
  4. MILK OF MAGNESIA TAB [Concomitant]
  5. BENADRYL [Concomitant]
  6. SUBOXONE [Concomitant]
  7. OMEPRAZOLE [Concomitant]
  8. GUANFACINE [Concomitant]
  9. PEGASYS [Suspect]
     Dosage: FREQUENCY:PER WEEK
     Route: 058
  10. VALTREX [Concomitant]
  11. CLONAZEPAM [Concomitant]
  12. PEGASYS [Suspect]
     Indication: HEPATITIS C
     Dosage: FREQUENCY:PER WEEK
     Route: 058
  13. COPEGUS [Suspect]
     Indication: HEPATITIS C
     Dosage: FREQUENCY:DIVIDED DOSES, 400 MG IN MORNING, 600 MG IN EVENING
     Route: 048
  14. LEVOXA [Concomitant]
  15. IMPLANON [Concomitant]
  16. LAMICTAL [Concomitant]
  17. COLACE [Concomitant]

REACTIONS (13)
  - HAEMOGLOBIN DECREASED [None]
  - ABDOMINAL PAIN [None]
  - MEGACOLON [None]
  - PAIN [None]
  - VOMITING [None]
  - DECREASED APPETITE [None]
  - ABDOMINAL DISTENSION [None]
  - ALOPECIA [None]
  - FATIGUE [None]
  - FULL BLOOD COUNT DECREASED [None]
  - WEIGHT DECREASED [None]
  - CONSTIPATION [None]
  - NAUSEA [None]
